FAERS Safety Report 4967161-7 (Version None)
Quarter: 2006Q2

REPORT INFORMATION
  Report Type: 
  Country: None (occurrence: None)
  Receive Date: 20060403
  Receipt Date: 20060321
  Transmission Date: 20061013
  Serious: Yes (Death, Hospitalization)
  Sender: FDA-Public Use
  Company Number: 2006033352

PATIENT
  Age: 60 Year
  Sex: Male
  Weight: 75.4 kg

DRUGS (10)
  1. SUTENT [Suspect]
     Indication: RENAL CELL CARCINOMA STAGE UNSPECIFIED
     Dosage: 50 MG (50 MG, 1 IN 1 D), ORAL
     Route: 048
     Dates: start: 20060207, end: 20060221
  2. DEXAMETHASONE [Concomitant]
  3. LEVETIRACETAM [Concomitant]
  4. MULTIVITAMIN [Concomitant]
  5. VITAMIN CAP [Concomitant]
  6. ALBUTEROL [Concomitant]
  7. ACETAMINOPHEN [Concomitant]
  8. ZOLPIDEM TARTRATE [Concomitant]
  9. CIMETIDINE [Concomitant]
  10. FUROSEMIDE [Concomitant]

REACTIONS (13)
  - ABDOMINAL DISTENSION [None]
  - ABDOMINAL PAIN [None]
  - CHILLS [None]
  - DIVERTICULITIS [None]
  - DYSPNOEA [None]
  - FATIGUE [None]
  - MALIGNANT NEOPLASM PROGRESSION [None]
  - MALIGNANT PLEURAL EFFUSION [None]
  - METASTASES TO LIVER [None]
  - METASTASES TO SPINE [None]
  - METASTASES TO SPLEEN [None]
  - METASTATIC RENAL CELL CARCINOMA [None]
  - PYREXIA [None]
